FAERS Safety Report 11268945 (Version 1)
Quarter: 2015Q3

REPORT INFORMATION
  Report Type: Spontaneous
  Country: US (occurrence: None)
  Receive Date: 20150710
  Receipt Date: 20150710
  Transmission Date: 20151125
  Serious: No
  Sender: FDA-Public Use
  Company Number: US-LHC-2015081

PATIENT
  Sex: Male

DRUGS (1)
  1. NITROGEN. [Suspect]
     Active Substance: NITROGEN
     Indication: ACTINIC KERATOSIS
     Route: 061

REACTIONS (1)
  - Milia [None]
